FAERS Safety Report 18417737 (Version 3)
Quarter: 2024Q1

REPORT INFORMATION
  Report Type: Spontaneous
  Country: RO (occurrence: RO)
  Receive Date: 20201023
  Receipt Date: 20240311
  Transmission Date: 20240410
  Serious: Yes (Other)
  Sender: FDA-Public Use
  Company Number: RO-CELLTRION INC.-2020RO029405

PATIENT

DRUGS (4)
  1. INFLIXIMAB [Suspect]
     Active Substance: INFLIXIMAB
     Dosage: 3 MG/KG
     Route: 042
     Dates: start: 2009
  2. REMICADE [Suspect]
     Active Substance: INFLIXIMAB
     Indication: Rheumatoid arthritis
     Dosage: 3 MG/KG
     Route: 042
     Dates: start: 2009
  3. METHOTREXATE [Suspect]
     Active Substance: METHOTREXATE
     Indication: Rheumatoid arthritis
     Dosage: 15 MG IN 1 WEEK
     Route: 065
     Dates: start: 2009
  4. SULFASALAZINE [Concomitant]
     Active Substance: SULFASALAZINE
     Indication: Rheumatoid arthritis
     Dosage: 3 G IN 1 DAY
     Route: 065

REACTIONS (4)
  - Deep vein thrombosis [Unknown]
  - Antiphospholipid syndrome [Unknown]
  - Extrapulmonary tuberculosis [Unknown]
  - Peritoneal tuberculosis [Unknown]

NARRATIVE: CASE EVENT DATE: 20160101
